FAERS Safety Report 10539952 (Version 1)
Quarter: 2014Q4

REPORT INFORMATION
  Report Type: Spontaneous
  Country: US (occurrence: None)
  Receive Date: 20141022
  Receipt Date: 20141022
  Transmission Date: 20150529
  Serious: Yes (Death)
  Sender: FDA-Public Use
  Company Number: INS201410-000224

PATIENT
  Age: 63 Year
  Sex: Female

DRUGS (1)
  1. SUBSYS [Suspect]
     Active Substance: FENTANYL
     Dosage: EVERY SIX HOUR
     Route: 060
     Dates: start: 20140917

REACTIONS (1)
  - Breast cancer stage IV [None]

NARRATIVE: CASE EVENT DATE: 20141005
